FAERS Safety Report 4692438-2 (Version None)
Quarter: 2005Q2

REPORT INFORMATION
  Report Type: 
  Country: None (occurrence: None)
  Receive Date: 20050616
  Receipt Date: 20050531
  Transmission Date: 20051028
  Serious: Yes (Death)
  Sender: FDA-Public Use
  Company Number: CA_050508098

PATIENT
  Age: 66 Year
  Sex: Female

DRUGS (13)
  1. FORTEO [Suspect]
     Indication: OSTEOPOROSIS
     Dosage: 20 UG/1 DAY
     Dates: start: 20050322
  2. ZYPREXA [Suspect]
     Route: 048
  3. SYNTHROID [Concomitant]
  4. TAMOXIFEN [Concomitant]
  5. VITAMIN D [Concomitant]
  6. FAMOTIDINE [Concomitant]
  7. MULTI-VITAMIN [Concomitant]
  8. STARNOC                     (ZALEPLON) [Concomitant]
  9. SOTALOL HCL [Concomitant]
  10. EFFEXOR [Concomitant]
  11. CALTRATE [Concomitant]
  12. DURAGESIC (FENTANYL) [Concomitant]
  13. CALCITONIN [Concomitant]

REACTIONS (2)
  - CARDIAC ARREST [None]
  - SUDDEN DEATH [None]
